FAERS Safety Report 5659253-4 (Version None)
Quarter: 2008Q1

REPORT INFORMATION
  Report Type: 
  Country: None (occurrence: None)
  Receive Date: 20080201
  Receipt Date: 20071203
  Transmission Date: 20080703
  Serious: Yes (Hospitalization)
  Sender: FDA-Public Use
  Company Number: 164938USA

PATIENT
  Age: 72 Year
  Sex: Female

DRUGS (1)
  1. ZOLPIDEM TARTRATE [Suspect]
     Indication: INSOMNIA
     Dosage: (10 MG), ORAL
     Route: 047
     Dates: start: 20070511, end: 20070512

REACTIONS (5)
  - ALTERED STATE OF CONSCIOUSNESS [None]
  - AMNESIA [None]
  - CONFUSIONAL STATE [None]
  - ROAD TRAFFIC ACCIDENT [None]
  - SOMNAMBULISM [None]
